FAERS Safety Report 5627196-8 (Version None)
Quarter: 2008Q1

REPORT INFORMATION
  Report Type: 
  Country: None (occurrence: None)
  Receive Date: 20080212
  Receipt Date: 20080212
  Transmission Date: 20080703
  Serious: No
  Sender: FDA-Public Use
  Company Number: None

PATIENT
  Age: 29 Year
  Sex: Male
  Weight: 75 kg

DRUGS (1)
  1. CHANTIX [Suspect]
     Indication: SMOKING CESSATION THERAPY
     Dosage: 2MG  DAILY  PO
     Route: 048
     Dates: start: 20071001, end: 20071101

REACTIONS (5)
  - AMNESIA [None]
  - ARTHRALGIA [None]
  - FEELING ABNORMAL [None]
  - SOMNOLENCE [None]
  - TINNITUS [None]
